FAERS Safety Report 10739402 (Version 2)
Quarter: 2016Q3

REPORT INFORMATION
  Report Type: Spontaneous
  Country: US (occurrence: US)
  Receive Date: 20150126
  Receipt Date: 20160818
  Transmission Date: 20161109
  Serious: No
  Sender: FDA-Public Use
  Company Number: US-GLAXOSMITHKLINE-US2014GSK048359

PATIENT
  Age: 50 Year
  Sex: Female

DRUGS (3)
  1. TANZEUM [Suspect]
     Active Substance: ALBIGLUTIDE
     Indication: TYPE 2 DIABETES MELLITUS
     Dosage: 30 MG, WE
     Route: 042
     Dates: start: 201411
  2. INFLUENZA VACCINE UNSPECIFIED 2014-2015 SEASON SOLUTION FOR INJECTION [Suspect]
     Active Substance: INFLUENZA VIRUS VACCINE
     Indication: PROPHYLAXIS
     Route: 042
     Dates: start: 201411, end: 201411
  3. TANZEUM [Suspect]
     Active Substance: ALBIGLUTIDE
     Dosage: 50 MG, WE
     Route: 042
     Dates: start: 201507

REACTIONS (6)
  - Epigastric discomfort [Unknown]
  - Feeling abnormal [Unknown]
  - Product preparation error [Unknown]
  - Anxiety [Unknown]
  - Device use error [Unknown]
  - Circumstance or information capable of leading to medication error [Unknown]

NARRATIVE: CASE EVENT DATE: 201411
